FAERS Safety Report 5716281-8 (Version None)
Quarter: 2008Q2

REPORT INFORMATION
  Report Type: 
  Country: None (occurrence: None)
  Receive Date: 20080424
  Receipt Date: 20080414
  Transmission Date: 20081010
  Serious: Yes (Other)
  Sender: FDA-Public Use
  Company Number: B0516900A

PATIENT
  Age: 76 Year
  Sex: Male

DRUGS (2)
  1. ZOPHREN [Suspect]
     Indication: PREMEDICATION
     Dosage: 1INJ SINGLE DOSE
     Route: 042
     Dates: start: 20080206, end: 20080206
  2. SOLU-MEDROL [Suspect]
     Indication: PREMEDICATION
     Dosage: 120MG SINGLE DOSE
     Route: 042
     Dates: start: 20080206, end: 20080206

REACTIONS (5)
  - CHEST DISCOMFORT [None]
  - DISSOCIATION [None]
  - FEELING HOT [None]
  - NAUSEA [None]
  - VOMITING [None]
